FAERS Safety Report 5963845-2 (Version None)
Quarter: 2008Q4

REPORT INFORMATION
  Report Type: 
  Country: None (occurrence: None)
  Receive Date: 20081124
  Receipt Date: 20081106
  Transmission Date: 20090506
  Serious: Yes (Hospitalization, Other)
  Sender: FDA-Public Use
  Company Number: JP-CELGENEUS-AZAJP200800371

PATIENT
  Sex: Female

DRUGS (10)
  1. VIDAZA [Suspect]
     Indication: MYELODYSPLASTIC SYNDROME
     Route: 058
     Dates: start: 20080716, end: 20080722
  2. VIDAZA [Suspect]
     Route: 058
     Dates: start: 20080912, end: 20080918
  3. VIDAZA [Suspect]
     Route: 058
     Dates: start: 20081023, end: 20081029
  4. PIRENOXINE [Concomitant]
     Indication: CATARACT
     Route: 047
     Dates: start: 20081003
  5. BETAMETHASONE SODIUM PHOSPHATE [Concomitant]
     Indication: KERATITIS
     Route: 047
     Dates: start: 20081003
  6. POVIDONE IODINE [Concomitant]
     Indication: INFECTION PROPHYLAXIS
     Route: 065
     Dates: start: 20081002
  7. TEPRENONE [Concomitant]
     Indication: GASTRITIS PROPHYLAXIS
     Route: 048
     Dates: start: 20080910
  8. MAGNESIUM OXIDE [Concomitant]
     Indication: CONSTIPATION
     Route: 048
     Dates: start: 20080828
  9. ZOLPIDEM TARTRATE [Concomitant]
     Route: 048
     Dates: start: 20080908
  10. AZULENE SULFONATE SODIUM [Concomitant]
     Indication: INFECTION PROPHYLAXIS
     Route: 065
     Dates: start: 20081002

REACTIONS (3)
  - ACUTE MYOCARDIAL INFARCTION [None]
  - COLITIS ISCHAEMIC [None]
  - PNEUMONIA [None]
